FAERS Safety Report 24421879 (Version 2)
Quarter: 2025Q3

REPORT INFORMATION
  Report Type: Spontaneous
  Country: GB (occurrence: GB)
  Receive Date: 20241010
  Receipt Date: 20250715
  Transmission Date: 20251020
  Serious: Yes (Hospitalization, Disabling, Other)
  Sender: STRIDES
  Company Number: None

PATIENT
  Age: 7 Decade
  Sex: Male

DRUGS (4)
  1. PREDNISOLONE [Suspect]
     Active Substance: PREDNISOLONE
     Indication: Immunosuppressant drug therapy
     Route: 065
  2. TACROLIMUS [Suspect]
     Active Substance: TACROLIMUS
     Indication: Immunosuppressant drug therapy
     Route: 065
  3. TACROLIMUS [Suspect]
     Active Substance: TACROLIMUS
     Route: 065
  4. TACROLIMUS [Suspect]
     Active Substance: TACROLIMUS
     Route: 065

REACTIONS (10)
  - Hand fracture [Recovering/Resolving]
  - Hand fracture [Recovering/Resolving]
  - Traumatic fracture [Recovering/Resolving]
  - Abscess limb [Recovering/Resolving]
  - Localised infection [Recovering/Resolving]
  - Mycobacterium chelonae infection [Recovering/Resolving]
  - Osteopenia [Recovering/Resolving]
  - Abscess bacterial [Recovering/Resolving]
  - Skin bacterial infection [Recovering/Resolving]
  - Off label use [Unknown]
